FAERS Safety Report 13976155 (Version 1)
Quarter: 2017Q3

REPORT INFORMATION
  Report Type: Spontaneous
  Country: US (occurrence: US)
  Receive Date: 20170915
  Receipt Date: 20170915
  Transmission Date: 20171128
  Serious: Yes (Other)
  Sender: FDA-Public Use
  Company Number: US-BAYER-2017-177334

PATIENT
  Sex: Female

DRUGS (1)
  1. MIRENA [Suspect]
     Active Substance: LEVONORGESTREL
     Dosage: 20 MCG/24HR, CONT
     Route: 015
     Dates: start: 201606

REACTIONS (6)
  - Embedded device [None]
  - Complication of device removal [None]
  - Device difficult to use [None]
  - Procedural pain [None]
  - Post procedural discomfort [None]
  - Device breakage [None]
